FAERS Safety Report 5863871-8 (Version None)
Quarter: 2008Q3

REPORT INFORMATION
  Report Type: 
  Country: None (occurrence: None)
  Receive Date: 20080827
  Receipt Date: 20080818
  Transmission Date: 20090109
  Serious: Yes (Disabling, Other)
  Sender: FDA-Public Use
  Company Number: GXKR2008DE07772

PATIENT
  Age: 68 Year
  Sex: Female

DRUGS (1)
  1. TRIAMCINOLONE [Suspect]
     Indication: MACULAR OEDEMA
     Dosage: 25 MG, ONCE/SINGLE, INTRAVITREAL IN

REACTIONS (6)
  - OFF LABEL USE [None]
  - OPTIC ATROPHY [None]
  - PUPILLARY REFLEX IMPAIRED [None]
  - RETINAL DEPOSITS [None]
  - SCOTOMA [None]
  - VISUAL ACUITY REDUCED [None]
